FAERS Safety Report 6666756-2 (Version None)
Quarter: 2010Q2

REPORT INFORMATION
  Report Type: 
  Country: None (occurrence: None)
  Receive Date: 20100401
  Receipt Date: 20100401
  Transmission Date: 20101027
  Serious: Yes (Hospitalization, Disabling)
  Sender: FDA-Public Use
  Company Number: None

PATIENT
  Age: 64 Year
  Sex: Female
  Weight: 68.9467 kg

DRUGS (1)
  1. FOSAMAX [Suspect]
     Indication: OSTEOPOROSIS
     Dosage: ONE P.O. WEEKLY P.O. (DURATION: GREATER THAN 10 YEARS)
     Route: 048

REACTIONS (6)
  - BACK INJURY [None]
  - CONTUSION [None]
  - FALL [None]
  - FEMUR FRACTURE [None]
  - JOINT INJURY [None]
  - RIB FRACTURE [None]
